FAERS Safety Report 18179192 (Version 1)
Quarter: 2020Q3

REPORT INFORMATION
  Report Type: Spontaneous
  Country: CN (occurrence: CN)
  Receive Date: 20200821
  Receipt Date: 20200821
  Transmission Date: 20201103
  Serious: Yes (Life-Threatening, Disabling)
  Sender: FDA-Public Use
  Company Number: CN-ROCHE-2662256

PATIENT
  Age: 68 Year
  Sex: Male
  Weight: 60 kg

DRUGS (4)
  1. VINORELBINE TARTRATE. [Suspect]
     Active Substance: VINORELBINE TARTRATE
     Indication: NON-HODGKIN^S LYMPHOMA
     Route: 041
     Dates: start: 20200801
  2. ETOPOSIDE. [Suspect]
     Active Substance: ETOPOSIDE
     Indication: NON-HODGKIN^S LYMPHOMA
     Route: 041
     Dates: start: 20200801
  3. MABTHERA [Suspect]
     Active Substance: RITUXIMAB
     Indication: NON-HODGKIN^S LYMPHOMA
     Route: 041
     Dates: start: 20200801
  4. CYCLOPHOSPHAMIDE. [Suspect]
     Active Substance: CYCLOPHOSPHAMIDE
     Indication: NON-HODGKIN^S LYMPHOMA
     Route: 041
     Dates: start: 20200801

REACTIONS (4)
  - Leukopenia [Recovering/Resolving]
  - Platelet count decreased [Recovering/Resolving]
  - Anaemia [Recovering/Resolving]
  - Agranulocytosis [Recovering/Resolving]

NARRATIVE: CASE EVENT DATE: 20200810
